FAERS Safety Report 20673452 (Version 1)
Quarter: 2022Q2

REPORT INFORMATION
  Report Type: Report from Study
  Country: IT (occurrence: IT)
  Receive Date: 20220405
  Receipt Date: 20220405
  Transmission Date: 20220720
  Serious: Yes (Other)
  Sender: FDA-Public Use
  Company Number: None

PATIENT
  Age: 44 Year
  Sex: Male

DRUGS (1)
  1. DIFLUCAN [Suspect]
     Active Substance: FLUCONAZOLE
     Indication: Candida infection
     Dosage: 150 MG
     Route: 048
     Dates: start: 20220316, end: 20220317

REACTIONS (4)
  - Angioedema [Recovering/Resolving]
  - Laryngeal oedema [Recovering/Resolving]
  - Bronchospasm [Unknown]
  - Urticaria [Unknown]

NARRATIVE: CASE EVENT DATE: 20220318
